FAERS Safety Report 24687201 (Version 1)
Quarter: 2024Q4

REPORT INFORMATION
  Report Type: Spontaneous
  Country: ES (occurrence: ES)
  Receive Date: 20241202
  Receipt Date: 20241202
  Transmission Date: 20250114
  Serious: Yes (Hospitalization, Other)
  Sender: MYLAN
  Company Number: None

PATIENT
  Sex: Male
  Weight: 72.5 kg

DRUGS (3)
  1. PAROXETINE [Interacting]
     Active Substance: PAROXETINE
     Indication: Product used for unknown indication
     Dosage: 200 MILLIGRAM, 1 TOTAL (200MG AS A SINGLE DOSE )
     Route: 048
     Dates: start: 20240519, end: 20240519
  2. ALPRAZOLAM [Interacting]
     Active Substance: ALPRAZOLAM
     Indication: Product used for unknown indication
     Dosage: 10 MILLIGRAM, 1 TOTAL (10MG AS A SINGLE DOSE)
     Route: 048
     Dates: start: 20240519, end: 20240519
  3. LORATADINE [Interacting]
     Active Substance: LORATADINE
     Indication: Product used for unknown indication
     Dosage: 100 MILLIGRAM, 1 TOTAL (100MG AS A SINGLE DOSE)
     Route: 048
     Dates: start: 20240519, end: 20240519

REACTIONS (3)
  - Depressed level of consciousness [Recovered/Resolved]
  - Suicide attempt [Unknown]
  - Drug interaction [Unknown]

NARRATIVE: CASE EVENT DATE: 20240519
